FAERS Safety Report 23513295 (Version 1)
Quarter: 2024Q1

REPORT INFORMATION
  Report Type: Spontaneous
  Country: US (occurrence: US)
  Receive Date: 20240212
  Receipt Date: 20240212
  Transmission Date: 20240410
  Serious: Yes (Other)
  Sender: FDA-Public Use
  Company Number: US-MYLANLABS-2024M1013189

PATIENT
  Age: 62 Year
  Sex: Female

DRUGS (2)
  1. METHOTREXATE [Suspect]
     Active Substance: METHOTREXATE
     Indication: Ocular lymphoma
     Dosage: UNK, MONTHLY, RECEIVED 12 CYCLES OF MONTHLY INTRAVITREAL INJECTIONS.
  2. RITUXIMAB [Suspect]
     Active Substance: RITUXIMAB
     Indication: Ocular lymphoma
     Dosage: UNK UNK, MONTHLY, RECEIVED 12 CYCLES OF MONTHLY INTRAVITREAL INJECTIONS.

REACTIONS (2)
  - Treatment failure [Unknown]
  - Off label use [Unknown]
